FAERS Safety Report 4961312-6 (Version None)
Quarter: 2006Q1

REPORT INFORMATION
  Report Type: 
  Country: None (occurrence: None)
  Receive Date: 20060328
  Receipt Date: 20060317
  Transmission Date: 20060701
  Serious: Yes (Death, Life-Threatening)
  Sender: FDA-Public Use
  Company Number: 223136

PATIENT
  Age: 69 Year
  Sex: Male
  Weight: 70 kg

DRUGS (11)
  1. MABTHERA (RITUXIMAB) CONC FOR SOLUTION FOR INFUSION [Suspect]
     Indication: CHRONIC LYMPHOCYTIC LEUKAEMIA
     Dosage: 680 MG, Q2W, INTRAVENOUS
     Route: 042
     Dates: start: 20050426, end: 20050721
  2. CYCLOPHOSPHAMIDE [Suspect]
     Indication: CHRONIC LYMPHOCYTIC LEUKAEMIA
     Dosage: Q2W, INTRAVENOUS
     Route: 042
     Dates: start: 20050427, end: 20050721
  3. DOXORUBICIN HCL [Suspect]
     Indication: CHRONIC LYMPHOCYTIC LEUKAEMIA
     Dosage: Q2W, INTRAVENOUS
     Route: 042
     Dates: start: 20050427, end: 20050721
  4. VINCRISTINE [Suspect]
     Indication: CHRONIC LYMPHOCYTIC LEUKAEMIA
     Dosage: INTRAVENOUS
     Route: 042
     Dates: start: 20050427, end: 20050721
  5. PREDNISONE TAB [Suspect]
     Dosage: Q2W, INTRAVENOUS
     Route: 042
     Dates: start: 20050427, end: 20050721
  6. NUTRIFLEX (AMINO ACIDS) [Concomitant]
  7. HUMAN ALBUMIN 20% (ALBUMIN HUMAN) [Concomitant]
  8. HYDROCORTISONE [Concomitant]
  9. PANTOPRAZOLE SODIUM [Concomitant]
  10. LIPOFUNDIN (INTRAVENOUS FAT EMULSION) [Concomitant]
  11. STEROFUNDIN (INTRAVENOUS SOLUTION NOS) [Concomitant]

REACTIONS (4)
  - HYPOXIC ENCEPHALOPATHY [None]
  - PNEUMONIA [None]
  - SEPSIS [None]
  - SHOCK [None]
